FAERS Safety Report 7093903-3 (Version None)
Quarter: 2010Q4

REPORT INFORMATION
  Report Type: 
  Country: None (occurrence: None)
  Receive Date: 20101110
  Receipt Date: 20100623
  Transmission Date: 20110411
  Serious: Yes (Life-Threatening, Hospitalization, Other)
  Sender: FDA-Public Use
  Company Number: US-BAYER-200942456NA

PATIENT
  Age: 15 Year
  Sex: Female
  Weight: 82 kg

DRUGS (16)
  1. YAZ [Suspect]
     Indication: PREMENSTRUAL SYNDROME
     Route: 048
     Dates: start: 20070425, end: 20080201
  2. AMOXICILLIN [Concomitant]
  3. NAPROSYN [Concomitant]
     Indication: DYSFUNCTIONAL UTERINE BLEEDING
     Dosage: USE AS NEEDED WITH HER PERIODS
  4. ALBUTEROL [Concomitant]
  5. NAPROXEN [Concomitant]
  6. RANITIDINE [Concomitant]
  7. CEPHALEXIN [Concomitant]
  8. CYCLOBENZAPRINE [Concomitant]
  9. APAP TAB [Concomitant]
     Dosage: 3 TABLETS
  10. PREDNISONE [Concomitant]
     Route: 047
  11. TRIMETH/POLYMYX B [Concomitant]
  12. PHENERGAN [Concomitant]
  13. MUSCLE RELAXER [Concomitant]
     Indication: MUSCLE RELAXANT THERAPY
  14. SEASONIQUE [Concomitant]
     Dates: start: 20081201
  15. AVIANE-28 [Concomitant]
     Dates: start: 20100101
  16. IBUPROFEN [Concomitant]

REACTIONS (13)
  - ABDOMINAL PAIN UPPER [None]
  - CHOLECYSTITIS [None]
  - CHOLELITHIASIS [None]
  - COLITIS [None]
  - DECREASED APPETITE [None]
  - DIARRHOEA [None]
  - DYSPEPSIA [None]
  - GASTROOESOPHAGEAL REFLUX DISEASE [None]
  - NAUSEA [None]
  - ORGAN FAILURE [None]
  - PANCREATITIS [None]
  - VOMITING [None]
  - WEIGHT DECREASED [None]
